FAERS Safety Report 4497864-2 (Version None)
Quarter: 2004Q4

REPORT INFORMATION
  Report Type: 
  Country: None (occurrence: None)
  Receive Date: 20041110
  Receipt Date: 20040915
  Transmission Date: 20050328
  Serious: Yes (Life-Threatening, Hospitalization)
  Sender: FDA-Public Use
  Company Number: DE-GLAXOSMITHKLINE-D0044686A

PATIENT
  Age: 30 Year
  Sex: Male
  Weight: 76 kg

DRUGS (2)
  1. ELMENDOS [Suspect]
     Dosage: 25MG TWICE PER DAY
     Route: 048
     Dates: start: 20040903, end: 20040913
  2. VALPROATE SODIUM [Suspect]
     Dosage: 600MG THREE TIMES PER DAY
     Route: 065
     Dates: start: 20000101

REACTIONS (12)
  - ASTHENIA [None]
  - BLOOD CREATININE INCREASED [None]
  - DEHYDRATION [None]
  - DRUG INTERACTION [None]
  - EXANTHEM [None]
  - FATIGUE [None]
  - GENERAL PHYSICAL HEALTH DETERIORATION [None]
  - PYREXIA [None]
  - RENAL FAILURE [None]
  - SOMNOLENCE [None]
  - THROMBOCYTOPENIA [None]
  - TRANSAMINASES INCREASED [None]
